FAERS Safety Report 24149300 (Version 1)
Quarter: 2024Q3

REPORT INFORMATION
  Report Type: Spontaneous
  Country: JP (occurrence: JP)
  Receive Date: 20240730
  Receipt Date: 20240730
  Transmission Date: 20241017
  Serious: Yes (Other)
  Sender: NOVITIUM PHARMA
  Company Number: JP-NOVITIUMPHARMA-2024JPNVP01410

PATIENT
  Age: 36 Year
  Sex: Female

DRUGS (4)
  1. DAPSONE [Suspect]
     Active Substance: DAPSONE
     Indication: Lepromatous leprosy
  2. CLOFAZIMINE [Concomitant]
     Active Substance: CLOFAZIMINE
     Indication: Lepromatous leprosy
  3. CLOFAZIMINE [Concomitant]
     Active Substance: CLOFAZIMINE
  4. RIFAMPIN [Concomitant]
     Active Substance: RIFAMPIN
     Indication: Lepromatous leprosy

REACTIONS (3)
  - Neutropenia [Unknown]
  - Anaemia [Unknown]
  - Methaemoglobinaemia [Unknown]
